FAERS Safety Report 6265850-8 (Version None)
Quarter: 2009Q3

REPORT INFORMATION
  Report Type: 
  Country: None (occurrence: None)
  Receive Date: 20090713
  Receipt Date: 20090706
  Transmission Date: 20100115
  Serious: Yes (Other)
  Sender: FDA-Public Use
  Company Number: B0583224A

PATIENT
  Sex: Male

DRUGS (4)
  1. PAXIL [Suspect]
     Indication: DRUG USE FOR UNKNOWN INDICATION
     Route: 048
  2. UNKNOWN DRUG [Suspect]
     Route: 048
  3. TOLEDOMIN [Concomitant]
     Route: 048
  4. UNKNOWN DRUG [Concomitant]
     Route: 065

REACTIONS (2)
  - AGGRESSION [None]
  - SUICIDE ATTEMPT [None]
